FAERS Safety Report 4393827-6 (Version None)
Quarter: 2004Q3

REPORT INFORMATION
  Report Type: 
  Country: None (occurrence: None)
  Receive Date: 20040707
  Receipt Date: 20040630
  Transmission Date: 20050211
  Serious: Yes (Death, Life-Threatening)
  Sender: FDA-Public Use
  Company Number: 2004-118023-NL

PATIENT
  Age: 73 Year
  Sex: Male

DRUGS (9)
  1. DANAPAROID SODIUM [Suspect]
     Indication: DISSEMINATED INTRAVASCULAR COAGULATION
     Dosage: 2500 ANTI-XA; INTRAVENOUS (NOS)
     Route: 042
     Dates: start: 20040531, end: 20040603
  2. ULINASTATIN [Concomitant]
  3. GABEXATE MESILATE [Concomitant]
  4. SIVELESTAT [Concomitant]
  5. ANTITHROMBIN III [Concomitant]
  6. ALBUMIN (HUMAN) [Concomitant]
  7. FAMOTIDINE [Concomitant]
  8. MEROPENEM [Concomitant]
  9. AMINOLEBAN [Concomitant]

REACTIONS (9)
  - ANAEMIA [None]
  - BRADYCARDIA [None]
  - CARDIAC ARREST [None]
  - HEPATIC FUNCTION ABNORMAL [None]
  - MELAENA [None]
  - MULTI-ORGAN FAILURE [None]
  - PERIPHERAL CIRCULATORY FAILURE [None]
  - SKIN NECROSIS [None]
  - UPPER GASTROINTESTINAL HAEMORRHAGE [None]
